FAERS Safety Report 12489620 (Version 1)
Quarter: 2016Q2

REPORT INFORMATION
  Report Type: Spontaneous
  Country: HR (occurrence: HR)
  Receive Date: 20160622
  Receipt Date: 20160622
  Transmission Date: 20160815
  Serious: Yes (Life-Threatening, Hospitalization)
  Sender: FDA-Public Use
  Company Number: HR-JNJFOC-20150217118

PATIENT
  Age: 29 Year
  Sex: Female

DRUGS (2)
  1. YONDELIS [Suspect]
     Active Substance: TRABECTEDIN
     Indication: FIBROMA
     Dosage: 3 CYCLES
     Route: 042
  2. YONDELIS [Suspect]
     Active Substance: TRABECTEDIN
     Route: 042

REACTIONS (3)
  - Pancytopenia [Recovered/Resolved]
  - Rhabdomyolysis [Recovered/Resolved]
  - Transaminases increased [Recovered/Resolved]
